FAERS Safety Report 15517686 (Version 1)
Quarter: 2018Q4

REPORT INFORMATION
  Report Type: Spontaneous
  Country: US (occurrence: US)
  Receive Date: 20181011
  Receipt Date: 20181011
  Transmission Date: 20190205
  Serious: Yes (Hospitalization)
  Sender: FDA-Public Use
  Company Number: None

PATIENT
  Age: 73 Year
  Sex: Male

DRUGS (12)
  1. TOBRAMYCIN 300MG/5ML [Suspect]
     Active Substance: TOBRAMYCIN
     Indication: CONDITION AGGRAVATED
     Dosage: ONE VIAL NEBULIZER ?
     Dates: start: 20180128
  2. ROPINIROLE. [Concomitant]
     Active Substance: ROPINIROLE
  3. TOBRAMYCIN 300MG/5ML [Suspect]
     Active Substance: TOBRAMYCIN
     Indication: BRONCHIECTASIS
     Dosage: ?          OTHER FREQUENCY:2.5MG, BID, 2WEEKS;?
  4. TOBRAMYCIN 300MG/5ML [Suspect]
     Active Substance: TOBRAMYCIN
     Indication: CONDITION AGGRAVATED
     Dosage: ?          OTHER FREQUENCY:2.5MG, BID, 2WEEKS;?
  5. SIMVASTATIN. [Concomitant]
     Active Substance: SIMVASTATIN
  6. TOBRAMYCIN 300MG/5ML [Suspect]
     Active Substance: TOBRAMYCIN
     Indication: BRONCHIECTASIS
     Dosage: ONE VIAL NEBULIZER ?
     Dates: start: 20180128
  7. AZITHROMYCIN ANHYDROUS. [Concomitant]
     Active Substance: AZITHROMYCIN ANHYDROUS
  8. SULFASALAZINE. [Concomitant]
     Active Substance: SULFASALAZINE
  9. PERCOCET [Concomitant]
     Active Substance: ACETAMINOPHEN\OXYCODONE HYDROCHLORIDE
  10. PROAIR HFA AER [Concomitant]
  11. GABAPENTIN. [Concomitant]
     Active Substance: GABAPENTIN
  12. BREO ELLIPTA INH [Concomitant]

REACTIONS (1)
  - Pneumonia [None]

NARRATIVE: CASE EVENT DATE: 201809
